FAERS Safety Report 6302989-2 (Version None)
Quarter: 2009Q3

REPORT INFORMATION
  Report Type: 
  Country: None (occurrence: None)
  Receive Date: 20090810
  Receipt Date: 20090804
  Transmission Date: 20100115
  Serious: Yes (Hospitalization)
  Sender: FDA-Public Use
  Company Number: PH-ASTRAZENECA-2009AP03052

PATIENT
  Age: 79 Year
  Sex: Female

DRUGS (5)
  1. IRESSA [Suspect]
     Indication: NON-SMALL CELL LUNG CANCER
     Route: 048
     Dates: start: 20090409, end: 20090417
  2. IRESSA [Suspect]
     Route: 048
     Dates: start: 20090419
  3. IRESSA [Suspect]
     Dosage: DOSE CHANGED DUE TO PNEUMONIA (REQUIRING HOSPITALISATION)
     Route: 048
     Dates: start: 20090505
  4. ANTIHISTAMINES [Concomitant]
  5. PYRALVEX [Concomitant]

REACTIONS (1)
  - PNEUMONIA [None]
